FAERS Safety Report 23499137 (Version 1)
Quarter: 2024Q1

REPORT INFORMATION
  Report Type: Spontaneous
  Country: US (occurrence: US)
  Receive Date: 20240208
  Receipt Date: 20240208
  Transmission Date: 20240410
  Serious: Yes (Other)
  Sender: FDA-Public Use
  Company Number: US-CHEPLA-2024001343

PATIENT
  Age: 81 Year
  Sex: Female
  Weight: 86.169 kg

DRUGS (14)
  1. HYDROXYUREA [Suspect]
     Active Substance: HYDROXYUREA
     Indication: Haemorrhage
     Dosage: DAILY DOSE: 500 MILLIGRAM
     Route: 048
     Dates: start: 202211
  2. HYDROXYUREA [Suspect]
     Active Substance: HYDROXYUREA
     Indication: Haemorrhage
     Dosage: DAILY DOSE: 1000 MILLIGRAM
     Route: 048
     Dates: start: 202212
  3. HYDROXYUREA [Suspect]
     Active Substance: HYDROXYUREA
     Indication: Haemorrhage
     Dosage: BID?DAILY DOSE: 1000 MILLIGRAM
     Route: 048
     Dates: end: 202206
  4. JAKAFI [Suspect]
     Active Substance: RUXOLITINIB
     Indication: Myeloproliferative neoplasm
     Dosage: BID?DAILY DOSE: 10 MILLIGRAM
     Dates: start: 20220610
  5. JAKAFI [Suspect]
     Active Substance: RUXOLITINIB
     Indication: Myeloproliferative neoplasm
     Dosage: BID?DAILY DOSE: 10 MILLIGRAM
     Dates: start: 20220720
  6. ALLOPURINOL [Concomitant]
     Active Substance: ALLOPURINOL
  7. Aspirin (E.C) [Concomitant]
     Dosage: DELAED RELEASE TABLET
  8. CLONIDINE HYDROCHLORIDE [Concomitant]
     Active Substance: CLONIDINE HYDROCHLORIDE
  9. CYANOCOBALAMIN [Concomitant]
     Active Substance: CYANOCOBALAMIN
  10. CHONDROITIN SULFATE A\GLUCOSAMINE [Concomitant]
     Active Substance: CHONDROITIN SULFATE A\GLUCOSAMINE
  11. LOSARTAN [Concomitant]
     Active Substance: LOSARTAN
  12. NIFEDIPINE [Concomitant]
     Active Substance: NIFEDIPINE
     Dosage: EXTENDED RELEASE
  13. OMEGA-3 FATTY ACIDS [Concomitant]
     Active Substance: OMEGA-3 FATTY ACIDS
  14. ROPINIROLE [Concomitant]
     Active Substance: ROPINIROLE

REACTIONS (9)
  - Hepatic perfusion disorder [Unknown]
  - Neutropenia [Recovering/Resolving]
  - COVID-19 [Unknown]
  - Nervousness [Unknown]
  - Anxiety [Unknown]
  - Blood glucose increased [Unknown]
  - Bundle branch block left [Unknown]
  - Cardiac murmur [Unknown]
  - Off label use [Unknown]

NARRATIVE: CASE EVENT DATE: 20220610
